FAERS Safety Report 5068528-1 (Version None)
Quarter: 2006Q3

REPORT INFORMATION
  Report Type: 
  Country: None (occurrence: None)
  Receive Date: 20060802
  Receipt Date: 20051109
  Transmission Date: 20061208
  Serious: No
  Sender: FDA-Public Use
  Company Number: US-BRISTOL-MYERS SQUIBB COMPANY-13174008

PATIENT
  Age: 62 Year

DRUGS (2)
  1. COUMADIN [Suspect]
     Indication: ATRIAL FIBRILLATION
     Dates: start: 20050101
  2. ASCORBIC ACID [Interacting]

REACTIONS (3)
  - DIARRHOEA [None]
  - DRUG INTERACTION [None]
  - FATIGUE [None]
